FAERS Safety Report 12264692 (Version 3)
Quarter: 2016Q2

REPORT INFORMATION
  Report Type: Spontaneous
  Country: JP (occurrence: JP)
  Receive Date: 20160413
  Receipt Date: 20160610
  Transmission Date: 20160815
  Serious: Yes (Hospitalization)
  Sender: FDA-Public Use
  Company Number: JP-PFIZER INC-2016164707

PATIENT
  Age: 83 Year
  Sex: Female

DRUGS (5)
  1. LYRICA [Suspect]
     Active Substance: PREGABALIN
     Dosage: 25 MG, DAILY
     Route: 048
     Dates: start: 20160128, end: 20160131
  2. LYRICA [Suspect]
     Active Substance: PREGABALIN
     Dosage: 50 MG, 2X/DAY
     Route: 048
     Dates: start: 20160210, end: 20160309
  3. LYRICA [Suspect]
     Active Substance: PREGABALIN
     Dosage: 100 MG, DAILY
     Route: 048
     Dates: start: 20160205, end: 20160209
  4. TRYPTANOL [Suspect]
     Active Substance: AMITRIPTYLINE
     Dosage: UNK
     Route: 048
  5. LYRICA [Suspect]
     Active Substance: PREGABALIN
     Dosage: 25 MG, 2X/DAY
     Route: 048
     Dates: start: 20160201, end: 20160204

REACTIONS (3)
  - Aggression [Recovered/Resolved]
  - Condition aggravated [Recovered/Resolved]
  - Diabetes mellitus [Recovered/Resolved]

NARRATIVE: CASE EVENT DATE: 20160210
